FAERS Safety Report 16053693 (Version 1)
Quarter: 2019Q1

REPORT INFORMATION
  Report Type: Spontaneous
  Country: US (occurrence: US)
  Receive Date: 20190308
  Receipt Date: 20190308
  Transmission Date: 20190418
  Serious: No
  Sender: FDA-Public Use
  Company Number: US-VIFOR (INTERNATIONAL) INC.-VIT-2019-02040

PATIENT
  Sex: Male

DRUGS (14)
  1. VELTASSA [Suspect]
     Active Substance: PATIROMER
     Indication: HYPERKALAEMIA
     Route: 048
     Dates: start: 20171114
  2. FERROUS SULFATE. [Concomitant]
     Active Substance: FERROUS SULFATE
  3. GLIPIZIDE ER [Concomitant]
     Active Substance: GLIPIZIDE
  4. ALLOPURINOL. [Concomitant]
     Active Substance: ALLOPURINOL
  5. CLOPIDOGREL BISULFATE. [Concomitant]
     Active Substance: CLOPIDOGREL BISULFATE
  6. COSOPT [Concomitant]
     Active Substance: DORZOLAMIDE HYDROCHLORIDE\TIMOLOL MALEATE
  7. DORZOLAMIDE HCL [Concomitant]
     Active Substance: DORZOLAMIDE HYDROCHLORIDE
  8. VITAMIN B12 [Concomitant]
     Active Substance: CYANOCOBALAMIN
  9. LATANOPROST. [Concomitant]
     Active Substance: LATANOPROST
  10. LOSARTAN POTASSIUM. [Concomitant]
     Active Substance: LOSARTAN POTASSIUM
  11. TRULICITY [Concomitant]
     Active Substance: DULAGLUTIDE
  12. XALATAN [Concomitant]
     Active Substance: LATANOPROST
  13. TIMOLOL MALEATE. [Concomitant]
     Active Substance: TIMOLOL MALEATE
  14. JANUVIA [Concomitant]
     Active Substance: SITAGLIPTIN PHOSPHATE

REACTIONS (1)
  - Blood glucose decreased [Unknown]
